FAERS Safety Report 24670811 (Version 1)
Quarter: 2024Q4

REPORT INFORMATION
  Report Type: Spontaneous
  Country: US (occurrence: None)
  Receive Date: 20241127
  Receipt Date: 20241127
  Transmission Date: 20250114
  Serious: Yes (Disabling)
  Sender: Public
  Company Number: None

PATIENT
  Age: 30 Year
  Sex: Female
  Weight: 53.1 kg

DRUGS (1)
  1. CIPROFLOXACIN\DEXAMETHASONE [Suspect]
     Active Substance: CIPROFLOXACIN\DEXAMETHASONE
     Dosage: FREQUENCY : EVERY 12 HOURS;?
     Route: 001
     Dates: start: 20241112, end: 20241114

REACTIONS (9)
  - Arthralgia [None]
  - Arthralgia [None]
  - Tendon pain [None]
  - Arthralgia [None]
  - Pain in extremity [None]
  - Arthralgia [None]
  - Neck pain [None]
  - Decreased activity [None]
  - Pain [None]
